FAERS Safety Report 4355633-8 (Version None)
Quarter: 2004Q2

REPORT INFORMATION
  Report Type: 
  Country: None (occurrence: None)
  Receive Date: 20040505
  Receipt Date: 20040423
  Transmission Date: 20050107
  Serious: Yes (Other)
  Sender: FDA-Public Use
  Company Number: US-JNJFOC-20031006269

PATIENT
  Age: 56 Year
  Sex: Female
  Weight: 81.6475 kg

DRUGS (17)
  1. REMICADE [Suspect]
     Indication: RHEUMATOID ARTHRITIS
     Dosage: 300 MG, INTRAVENOUS
     Route: 042
     Dates: start: 20020313
  2. REMICADE [Suspect]
     Dosage: 300 MG, INTRAVENOUS
     Route: 042
     Dates: start: 20020327
  3. REMICADE [Suspect]
     Dosage: 300 MG, INTRAVENOUS
     Route: 042
     Dates: start: 20020423
  4. REMICADE [Suspect]
     Dosage: 300 MG, INTRAVENOUS
     Route: 042
     Dates: start: 20020619
  5. REMICADE [Suspect]
     Dosage: 300 MG, INTRAVENOUS
     Route: 042
     Dates: start: 20020821
  6. REMICADE [Suspect]
     Dosage: 300 MG, INTRAVENOUS
     Route: 042
     Dates: start: 20021204, end: 20021204
  7. REMICADE [Suspect]
     Dosage: 300 MG, INTRAVENOUS
     Route: 042
     Dates: start: 20021009, end: 20021009
  8. REMICADE [Suspect]
     Dosage: 300 MG INTRAVENOUS
     Route: 042
     Dates: start: 20030129, end: 20030129
  9. REMICADE [Suspect]
     Dosage: 300 MG, INTRAVENOUS
     Route: 042
     Dates: start: 20030319, end: 20030319
  10. REMICADE [Suspect]
     Dosage: 300 MG, INTRAVENOUS
     Route: 042
     Dates: start: 20030521, end: 20030521
  11. REMICADE [Suspect]
     Dosage: 300 MG, INTRAVENOUS
     Route: 042
     Dates: start: 20030716, end: 20030716
  12. REMICADE [Suspect]
     Dosage: 300 MG, INTRAVENOUS
     Route: 042
     Dates: start: 20030910, end: 20030910
  13. CELEBREX [Concomitant]
  14. PREDNISONE [Concomitant]
  15. METHOTREXATE [Concomitant]
  16. SOLU-MEDROL [Concomitant]
  17. TYLENOL [Concomitant]

REACTIONS (11)
  - BACK PAIN [None]
  - DYSPNOEA [None]
  - FLUSHING [None]
  - INFUSION RELATED REACTION [None]
  - LUNG SQUAMOUS CELL CARCINOMA STAGE IV [None]
  - NAUSEA [None]
  - PNEUMOTHORAX [None]
  - SALIVARY HYPERSECRETION [None]
  - SYSTEMIC LUPUS ERYTHEMATOSUS [None]
  - URTICARIA [None]
  - VOMITING [None]
